FAERS Safety Report 5530317-9 (Version None)
Quarter: 2007Q4

REPORT INFORMATION
  Report Type: 
  Country: None (occurrence: None)
  Receive Date: 20071130
  Receipt Date: 20070420
  Transmission Date: 20080405
  Serious: No
  Sender: FDA-Public Use
  Company Number: A0648171A

PATIENT

DRUGS (1)
  1. AUGMENTIN '250' [Suspect]
     Indication: DRUG USE FOR UNKNOWN INDICATION
     Dosage: 875MG UNKNOWN
     Route: 065

REACTIONS (1)
  - SKIN ODOUR ABNORMAL [None]
